FAERS Safety Report 21140793 (Version 5)
Quarter: 2022Q4

REPORT INFORMATION
  Report Type: Spontaneous
  Country: ES (occurrence: ES)
  Receive Date: 20220728
  Receipt Date: 20221018
  Transmission Date: 20230112
  Serious: Yes (Other)
  Sender: FDA-Public Use
  Company Number: ES-SA-SAC20220726000807

PATIENT
  Age: 71 Year
  Sex: Male

DRUGS (25)
  1. ISATUXIMAB [Suspect]
     Active Substance: ISATUXIMAB
     Indication: Plasma cell myeloma
     Dosage: UNK
     Route: 065
     Dates: start: 20220621
  2. DEXAMETHASONE [Suspect]
     Active Substance: DEXAMETHASONE
  3. CARFILZOMIB [Concomitant]
     Active Substance: CARFILZOMIB
     Dosage: UNK
  4. LENALIDOMIDE [Concomitant]
     Active Substance: LENALIDOMIDE
     Dosage: UNK
  5. SULFAMETHOXAZOLE\TRIMETHOPRIM [Concomitant]
     Active Substance: SULFAMETHOXAZOLE\TRIMETHOPRIM
  6. ACYCLOVIR [Concomitant]
     Active Substance: ACYCLOVIR
     Dosage: 80 MG, QD
  7. ENOXAPARIN SODIUM [Concomitant]
     Active Substance: ENOXAPARIN SODIUM
     Dosage: 60 MG
     Route: 058
  8. ERYTHROPOIETIN [Concomitant]
     Active Substance: ERYTHROPOIETIN
     Dosage: 40 IU, QW
     Route: 058
  9. ALLOPURINOL ZYDUS [Concomitant]
     Dosage: 300 MG, QD
  10. CALCIUM-SANDOZ D3 [Concomitant]
     Dosage: UNK;1000 MG/880 UI
  11. FOLIC ACID [Concomitant]
     Active Substance: FOLIC ACID
     Dosage: UNK UNK, QD
  12. TORSEMIDE [Concomitant]
     Active Substance: TORSEMIDE
     Dosage: 1 DF, QD
  13. NOLOTIL [DEXTROPROPOXYPHENE;METAMIZOLE MAGNESIUM] [Concomitant]
     Dosage: UNK UNK, TID
  14. MORPHINE SULFATE [Concomitant]
     Active Substance: MORPHINE SULFATE
     Dosage: 30-0-30
  15. ACTIQ [Concomitant]
     Active Substance: FENTANYL CITRATE
     Dosage: UNK; AS PER PRESCRIPTION
  16. PREGABALIN [Concomitant]
     Active Substance: PREGABALIN
     Dosage: 150-0-150
  17. URSOBILANE [Concomitant]
  18. URSOBILANE [Concomitant]
     Dosage: 300 MG: 1-1-1
  19. CALCIUM [Concomitant]
     Active Substance: CALCIUM
  20. POMALIDOMIDE [Concomitant]
     Active Substance: POMALIDOMIDE
  21. POMALIDOMIDE [Concomitant]
     Active Substance: POMALIDOMIDE
     Dosage: 4 MG A DAY X 10 DAYS
  22. DEXAMETHASONE [Concomitant]
     Active Substance: DEXAMETHASONE
  23. DEXAMETHASONE [Concomitant]
     Active Substance: DEXAMETHASONE
     Dosage: 20 MG ON MONDAY AND THURSDAY
  24. BELANTAMAB MAFODOTIN [Concomitant]
     Active Substance: BELANTAMAB MAFODOTIN
  25. POMALIN [Concomitant]

REACTIONS (19)
  - Hepatotoxicity [Unknown]
  - Transaminases increased [Unknown]
  - Liver function test increased [Unknown]
  - Hepatic cytolysis [Unknown]
  - Hepatitis cholestatic [Unknown]
  - Hepatitis acute [Unknown]
  - Pancreatic atrophy [Unknown]
  - Hepatitis [Unknown]
  - Biliary dilatation [Unknown]
  - Plasmacytoma [Unknown]
  - Hepatic cytolysis [Unknown]
  - Pain [Unknown]
  - Osteolysis [Unknown]
  - Splenomegaly [Unknown]
  - Arteriosclerosis [Unknown]
  - Periportal sinus dilatation [Unknown]
  - Lymphocytosis [Unknown]
  - Liver disorder [Unknown]
  - Epstein-Barr virus infection [Unknown]

NARRATIVE: CASE EVENT DATE: 20220101
